FAERS Safety Report 24131822 (Version 1)
Quarter: 2024Q3

REPORT INFORMATION
  Report Type: Spontaneous
  Country: JP (occurrence: JP)
  Receive Date: 20240724
  Receipt Date: 20240724
  Transmission Date: 20241016
  Serious: Yes (Other)
  Sender: BAYER
  Company Number: JP-BAYER-2024A105770

PATIENT
  Sex: Female

DRUGS (1)
  1. MIRENA [Suspect]
     Active Substance: LEVONORGESTREL
     Indication: Cervical dysplasia
     Dosage: 20?G/DAY
     Route: 015

REACTIONS (3)
  - Cervical dysplasia [None]
  - Off label use of device [None]
  - Device use issue [None]
